FAERS Safety Report 6500395-9 (Version None)
Quarter: 2009Q4

REPORT INFORMATION
  Report Type: 
  Country: None (occurrence: None)
  Receive Date: 20091216
  Receipt Date: 20091205
  Transmission Date: 20100525
  Serious: Yes (Other)
  Sender: FDA-Public Use
  Company Number: PHHY2009IN53931

PATIENT
  Age: 25 Year
  Sex: Female

DRUGS (2)
  1. DESFERAL [Suspect]
     Dosage: 10 VIALS
  2. VITAMIN B COMPLEX CAP [Concomitant]

REACTIONS (4)
  - BRONCHOSPASM [None]
  - PALLOR [None]
  - PRURITUS [None]
  - RASH [None]
